FAERS Safety Report 9407941 (Version 1)
Quarter: 2013Q1

REPORT INFORMATION
  Report Type: Spontaneous
  Country: US (occurrence: None)
  Receive Date: 20130308
  Receipt Date: 20130308
  Transmission Date: 20140127
  Serious: Yes (Hospitalization)
  Sender: FDA-Public Use
  Company Number: 126758-2

PATIENT
  Age: 69 Year
  Sex: Male
  Weight: 78 kg

DRUGS (1)
  1. ADRIAMYCIN [Suspect]
     Indication: PLASMA CELL MYELOMA
     Route: 042
     Dates: start: 20110830, end: 20110902

REACTIONS (4)
  - Klebsiella bacteraemia [None]
  - Soft tissue infection [None]
  - Neutropenia [None]
  - Anaemia [None]
